FAERS Safety Report 8256753-8 (Version None)
Quarter: 2012Q2

REPORT INFORMATION
  Report Type: 
  Country: None (occurrence: None)
  Receive Date: 20120403
  Receipt Date: 20120327
  Transmission Date: 20120825
  Serious: Yes (Hospitalization)
  Sender: FDA-Public Use
  Company Number: FR-PFIZER INC-2012077811

PATIENT
  Age: 36 Year
  Sex: Male

DRUGS (27)
  1. OFLOXACIN [Concomitant]
     Dosage: UNK
  2. VANCOMYCIN [Concomitant]
     Indication: PYREXIA
     Dosage: UNK
     Dates: start: 20120212, end: 20120220
  3. CYTARABINE [Concomitant]
     Dosage: UNK
     Dates: start: 20120128, end: 20120204
  4. CYTARABINE [Concomitant]
     Dosage: UNK
     Route: 037
     Dates: start: 20120209, end: 20120212
  5. DEPO-MEDROL [Concomitant]
     Dosage: 40 MG, UNK
     Route: 037
     Dates: start: 20120207
  6. HYDREA [Concomitant]
     Dosage: UNK
  7. VFEND [Suspect]
     Dosage: 200 MG, UNK
     Dates: start: 20120224, end: 20120224
  8. FLAGYL [Concomitant]
     Indication: BRAIN ABSCESS
     Dosage: UNK
     Dates: start: 20120203, end: 20120209
  9. PIPERACILLIN AND TAZOBACTAM [Concomitant]
     Indication: ENCEPHALITIS
     Dosage: 12 G, DAILY
     Dates: start: 20120203, end: 20120203
  10. PIPERACILLIN AND TAZOBACTAM [Concomitant]
     Dosage: UNK
     Dates: start: 20120209, end: 20120215
  11. PIPERACILLIN AND TAZOBACTAM [Concomitant]
     Dosage: UNK
     Dates: start: 20120217
  12. ROCEPHIN [Concomitant]
     Indication: PYREXIA
     Dosage: UNK
     Dates: start: 20120127, end: 20120128
  13. CYTARABINE [Concomitant]
     Dosage: UNK
     Route: 037
     Dates: start: 20120207
  14. METHOTREXATE [Concomitant]
     Dosage: 15 MG, UNK
     Route: 037
     Dates: start: 20120207
  15. VFEND [Suspect]
     Dosage: 380 MG, UNK
     Dates: start: 20120214, end: 20120216
  16. VFEND [Suspect]
     Dosage: 600 MG, UNK
     Dates: start: 20120217, end: 20120217
  17. VFEND [Suspect]
     Indication: ASPERGILLOSIS
     Dosage: 560 MG, UNK
     Dates: start: 20120213, end: 20120213
  18. ROVAMYCINE [Concomitant]
     Dosage: UNK
     Dates: start: 20120128, end: 20120201
  19. METHOTREXATE [Concomitant]
     Dosage: UNK
     Route: 037
     Dates: start: 20120209
  20. NEXIUM [Concomitant]
     Dosage: 40 MG, UNK
     Dates: start: 20120217, end: 20120223
  21. CYTARABINE [Concomitant]
     Dosage: UNK
     Dates: start: 20120210, end: 20120212
  22. DAUNORUBICIN [Concomitant]
     Dosage: UNK
     Dates: start: 20120130, end: 20120201
  23. DAUNORUBICIN [Concomitant]
     Dosage: UNK
     Dates: start: 20120210, end: 20120211
  24. FASTURTEC [Concomitant]
     Dosage: UNK
  25. VFEND [Suspect]
     Dosage: 400 MG, UNK
     Dates: start: 20120218, end: 20120223
  26. ROCEPHIN [Concomitant]
     Dosage: UNK
     Dates: start: 20120201, end: 20120209
  27. DEPO-MEDROL [Concomitant]
     Dosage: UNK
     Route: 037
     Dates: start: 20120209

REACTIONS (3)
  - COMA [None]
  - HALLUCINATION, VISUAL [None]
  - HALLUCINATION, AUDITORY [None]
